FAERS Safety Report 7271556-9 (Version None)
Quarter: 2011Q1

REPORT INFORMATION
  Report Type: 
  Country: None (occurrence: None)
  Receive Date: 20110203
  Receipt Date: 20110120
  Transmission Date: 20110831
  Serious: Yes (Hospitalization, Other)
  Sender: FDA-Public Use
  Company Number: CH-RANBAXY-2011RR-41431

PATIENT
  Age: 72 Year
  Sex: Female

DRUGS (1)
  1. AMOXICILLIN AND CLAVULANATE POTASSIUM [Suspect]
     Indication: OROPHARYNGEAL PAIN
     Dosage: UNK

REACTIONS (3)
  - PRURITUS [None]
  - JAUNDICE [None]
  - HEPATOTOXICITY [None]
